FAERS Safety Report 18795983 (Version 7)
Quarter: 2021Q3

REPORT INFORMATION
  Report Type: Report from Study
  Country: HU (occurrence: HU)
  Receive Date: 20210127
  Receipt Date: 20210902
  Transmission Date: 20211014
  Serious: Yes (Hospitalization)
  Sender: FDA-Public Use
  Company Number: HU-EISAI MEDICAL RESEARCH-EC-2021-087075

PATIENT
  Age: 63 Year
  Sex: Female
  Weight: 59 kg

DRUGS (15)
  1. MEGESTROL PHARMACENTER [Concomitant]
     Dates: start: 199701
  2. SIRDALUD [Concomitant]
     Active Substance: TIZANIDINE
     Dates: start: 199701
  3. LENVATINIB [Suspect]
     Active Substance: LENVATINIB
     Route: 048
     Dates: start: 20210127
  4. PEMBROLIZUMAB. [Suspect]
     Active Substance: PEMBROLIZUMAB
     Route: 042
     Dates: start: 20210119
  5. EUTHYROX [Concomitant]
     Active Substance: LEVOTHYROXINE SODIUM
     Dates: start: 199701
  6. BISOBLOCK [Concomitant]
     Active Substance: BISOPROLOL FUMARATE
     Dates: start: 199701
  7. ASACTAL [Concomitant]
     Active Substance: ASPIRIN
     Dates: start: 199801
  8. COVERCARD [Concomitant]
     Active Substance: AMLODIPINE BESYLATE\PERINDOPRIL ARGININE
     Dates: start: 199802
  9. LENVATINIB [Suspect]
     Active Substance: LENVATINIB
     Indication: SQUAMOUS CELL CARCINOMA OF HEAD AND NECK
     Route: 048
     Dates: start: 20201202, end: 20210112
  10. PEMBROLIZUMAB. [Suspect]
     Active Substance: PEMBROLIZUMAB
     Indication: SQUAMOUS CELL CARCINOMA OF HEAD AND NECK
     Route: 042
     Dates: start: 20201202, end: 20201202
  11. PEMBROLIZUMAB. [Suspect]
     Active Substance: PEMBROLIZUMAB
     Route: 042
     Dates: start: 20201223, end: 20201223
  12. FRONTIN [Concomitant]
     Active Substance: ALPRAZOLAM
     Dates: start: 199701
  13. FLEMAC [Concomitant]
     Dates: start: 199701
  14. XETER [Concomitant]
     Active Substance: ROSUVASTATIN CALCIUM
     Dates: start: 199702
  15. TRAMADOL HYDROCHLORIDE. [Concomitant]
     Active Substance: TRAMADOL HYDROCHLORIDE
     Dates: start: 201005

REACTIONS (1)
  - Cholecystitis [Recovered/Resolved]

NARRATIVE: CASE EVENT DATE: 20210110
